FAERS Safety Report 20721466 (Version 1)
Quarter: 2022Q2

REPORT INFORMATION
  Report Type: Spontaneous
  Country: US (occurrence: None)
  Receive Date: 20220417
  Receipt Date: 20220417
  Transmission Date: 20220721
  Serious: No
  Sender: FDA-Public Use
  Company Number: None

PATIENT
  Age: 26 Year
  Sex: Female
  Weight: 50.4 kg

DRUGS (1)
  1. EQUATE ALLERGY RELIEF (LORATADINE) [Suspect]
     Active Substance: LORATADINE
     Indication: Multiple allergies
     Dosage: OTHER QUANTITY : 1 TABLET(S);?
     Route: 048
     Dates: start: 20210430, end: 20220408

REACTIONS (5)
  - Nasopharyngitis [None]
  - Paranasal sinus discomfort [None]
  - Pruritus [None]
  - Insomnia [None]
  - Fear [None]

NARRATIVE: CASE EVENT DATE: 20220408
